FAERS Safety Report 4855426-9 (Version None)
Quarter: 2005Q4

REPORT INFORMATION
  Report Type: 
  Country: None (occurrence: None)
  Receive Date: 20051125
  Receipt Date: 20050214
  Transmission Date: 20060501
  Serious: Yes (Other)
  Sender: FDA-Public Use
  Company Number: US-JNJFOC-20050203908

PATIENT
  Age: 65 Year
  Sex: Female

DRUGS (3)
  1. LEVAQUIN [Suspect]
     Indication: URINARY TRACT INFECTION
     Dosage: 250 MG
     Dates: start: 20050113, end: 20050119
  2. LEXAPRO [Concomitant]
  3. SYNTHROID [Concomitant]

REACTIONS (4)
  - AGITATION [None]
  - CONFUSIONAL STATE [None]
  - HALLUCINATION [None]
  - PARANOIA [None]
